FAERS Safety Report 14770602 (Version 2)
Quarter: 2018Q2

REPORT INFORMATION
  Report Type: Report from Study
  Country: PT (occurrence: PT)
  Receive Date: 20180417
  Receipt Date: 20180423
  Transmission Date: 20180711
  Serious: Yes (Life-Threatening)
  Sender: FDA-Public Use
  Company Number: PT-PFIZER INC-2018154896

PATIENT
  Age: 77 Year
  Sex: Male

DRUGS (9)
  1. CAPTOPRIL. [Concomitant]
     Active Substance: CAPTOPRIL
     Dosage: UNK
     Dates: start: 20140217
  2. AMIODARONE HCL [Suspect]
     Active Substance: AMIODARONE HYDROCHLORIDE
     Indication: ACUTE CORONARY SYNDROME
     Dosage: 200 MG, DAILY
     Route: 048
     Dates: start: 20140225
  3. CARVEDILOL. [Concomitant]
     Active Substance: CARVEDILOL
     Dosage: UNK
     Dates: start: 20140220
  4. LEVOTIROXINA SODICA [Concomitant]
     Dosage: UNK
  5. PRAVASTATIN. [Concomitant]
     Active Substance: PRAVASTATIN
     Dosage: UNK
     Dates: start: 20140217
  6. PRADAXA [Interacting]
     Active Substance: DABIGATRAN ETEXILATE MESYLATE
     Indication: ACUTE CORONARY SYNDROME
     Dosage: 110 MG, DAILY
     Route: 048
     Dates: start: 20140303, end: 20140416
  7. ESPIRONOLACTONA [Concomitant]
     Active Substance: SPIRONOLACTONE
     Dosage: UNK
     Dates: start: 20140219
  8. TAMSULOSIN [Concomitant]
     Active Substance: TAMSULOSIN
     Dosage: UNK
     Dates: start: 20140225, end: 20140303
  9. FUROSEMIDA [Concomitant]
     Active Substance: FUROSEMIDE
     Dosage: UNK
     Dates: start: 20140217

REACTIONS (7)
  - Anaemia [Recovering/Resolving]
  - Epistaxis [Recovered/Resolved]
  - Hypotension [Recovering/Resolving]
  - Rectal haemorrhage [Recovered/Resolved]
  - Haematuria [Recovered/Resolved]
  - Haematochezia [Recovering/Resolving]
  - Drug interaction [Unknown]

NARRATIVE: CASE EVENT DATE: 20140416
